FAERS Safety Report 13457433 (Version 8)
Quarter: 2017Q3

REPORT INFORMATION
  Report Type: Spontaneous
  Country: US (occurrence: US)
  Receive Date: 20170419
  Receipt Date: 20170904
  Transmission Date: 20171127
  Serious: No
  Sender: FDA-Public Use
  Company Number: PHEH2017US011354

PATIENT
  Sex: Female
  Weight: 74.83 kg

DRUGS (3)
  1. ZOFRAN ODT [Suspect]
     Active Substance: ONDANSETRON HYDROCHLORIDE
     Indication: PRODUCT USED FOR UNKNOWN INDICATION
     Dosage: 08 MG, BID
     Route: 048
  2. ZOFRAN [Suspect]
     Active Substance: ONDANSETRON HYDROCHLORIDE
     Indication: VOMITING IN PREGNANCY
     Dosage: 24 MG, PRN
     Route: 042
     Dates: start: 20031208, end: 20040608
  3. ZOFRAN [Suspect]
     Active Substance: ONDANSETRON HYDROCHLORIDE
     Indication: VOMITING IN PREGNANCY
     Dosage: 8 MG, PRN
     Route: 048
     Dates: start: 20031208, end: 20040608

REACTIONS (27)
  - Injury [Unknown]
  - Stress [Unknown]
  - Myalgia [Unknown]
  - Dyspnoea [Unknown]
  - Chest pain [Unknown]
  - Maternal exposure during pregnancy [Unknown]
  - Product use in unapproved indication [Unknown]
  - Nasal congestion [Unknown]
  - Chest discomfort [Unknown]
  - Chills [Unknown]
  - Dizziness [Unknown]
  - Ear pain [Unknown]
  - Emotional distress [Unknown]
  - Vertigo [Unknown]
  - Sinus pain [Unknown]
  - Acute sinusitis [Unknown]
  - Cough [Unknown]
  - Upper respiratory tract infection [Unknown]
  - Malaise [Unknown]
  - Anxiety [Unknown]
  - Otitis media acute [Unknown]
  - Facial pain [Unknown]
  - Rhinorrhoea [Unknown]
  - Oropharyngeal pain [Unknown]
  - Wheezing [Unknown]
  - Pyrexia [Unknown]
  - Headache [Unknown]
